FAERS Safety Report 10089818 (Version 1)
Quarter: 2014Q2

REPORT INFORMATION
  Report Type: Spontaneous
  Country: IT (occurrence: IT)
  Receive Date: 20140421
  Receipt Date: 20140421
  Transmission Date: 20141212
  Serious: Yes (Death)
  Sender: FDA-Public Use
  Company Number: IT-ACTAVIS-2014-07470

PATIENT
  Age: 37 Year
  Sex: Male

DRUGS (6)
  1. MORPHINE (UNKNOWN) [Suspect]
     Indication: DRUG ABUSE
     Dosage: UNK
     Route: 065
  2. CODEINE (UNKNOWN) [Interacting]
     Indication: DRUG ABUSE
     Dosage: UNK
     Route: 065
  3. DEXTROMETHORPHAN [Interacting]
     Indication: DRUG ABUSE
     Dosage: UNK
     Route: 042
  4. CAFFEINE [Suspect]
     Indication: DRUG ABUSE
     Dosage: UNK
     Route: 042
  5. METHADONE [Suspect]
     Indication: PRODUCT USED FOR UNKNOWN INDICATION
     Dosage: UNK
     Route: 065
  6. HEROIN [Interacting]
     Indication: DRUG ABUSE
     Dosage: UNK
     Route: 065

REACTIONS (4)
  - Death [Fatal]
  - Drug interaction [Fatal]
  - Drug abuse [Fatal]
  - Overdose [Fatal]
